FAERS Safety Report 7291498-2 (Version None)
Quarter: 2011Q1

REPORT INFORMATION
  Report Type: 
  Country: None (occurrence: None)
  Receive Date: 20110214
  Receipt Date: 20110207
  Transmission Date: 20110831
  Serious: Yes (Hospitalization)
  Sender: FDA-Public Use
  Company Number: FR-PFIZER INC-2011026775

PATIENT
  Age: 53 Year
  Sex: Female
  Weight: 150 kg

DRUGS (1)
  1. AROMASIN [Suspect]
     Dosage: 25 MG, 1X/DAY
     Route: 048
     Dates: start: 20100601

REACTIONS (4)
  - OEDEMA [None]
  - OEDEMA PERIPHERAL [None]
  - SKIN ULCER [None]
  - ERYSIPELAS [None]
